FAERS Safety Report 4886682-9 (Version None)
Quarter: 2006Q1

REPORT INFORMATION
  Report Type: 
  Country: None (occurrence: None)
  Receive Date: 20060119
  Receipt Date: 20060103
  Transmission Date: 20060701
  Serious: Yes (Hospitalization)
  Sender: FDA-Public Use
  Company Number: 221136

PATIENT
  Age: 57 Year
  Sex: Male

DRUGS (7)
  1. AVASTIN [Suspect]
     Indication: COLORECTAL CANCER
     Dosage: 750 MG, Q3W, INTRAVENOUS
     Route: 042
     Dates: start: 20051103
  2. CAPECITABINE (CAPECITABINE) [Suspect]
     Indication: COLORECTAL CANCER
     Dosage: 4000 MG, QD, ORAL
     Route: 048
     Dates: start: 20051103
  3. OXALIPLATIN (OXALIPLATIN) [Suspect]
     Indication: COLORECTAL CANCER
     Dosage: 286 MG, Q3W, INTRAVENOUS
     Route: 042
     Dates: start: 20051103
  4. CETUXIMAB (CETUXIMAB) [Suspect]
     Indication: COLORECTAL CANCER
     Dosage: 550 MG, DAYS 1, 8, 15, INTRAVENOUS
     Route: 042
     Dates: start: 20051104
  5. COVERSYL (PERINDOPRIL) [Concomitant]
  6. DOXYCYCLINE [Concomitant]
  7. ZOLPIDEM TARTRATE [Concomitant]

REACTIONS (1)
  - PYREXIA [None]
